FAERS Safety Report 12717861 (Version 3)
Quarter: 2017Q1

REPORT INFORMATION
  Report Type: Spontaneous
  Country: US (occurrence: US)
  Receive Date: 20160906
  Receipt Date: 20170317
  Transmission Date: 20170428
  Serious: Yes (Other)
  Sender: FDA-Public Use
  Company Number: US-SA-2016SA164365

PATIENT
  Age: 67 Year
  Sex: Female

DRUGS (2)
  1. ALIROCUMAB PREFILLED PEN [Concomitant]
     Active Substance: ALIROCUMAB
     Indication: TYPE V HYPERLIPIDAEMIA
     Dates: start: 20160707
  2. PRALUENT [Suspect]
     Active Substance: ALIROCUMAB
     Indication: TYPE V HYPERLIPIDAEMIA
     Route: 058
     Dates: start: 20160707

REACTIONS (5)
  - Product use issue [Unknown]
  - Myocardial infarction [Unknown]
  - Arterial disorder [Unknown]
  - Unevaluable event [Unknown]
  - Arterial disorder [Unknown]

NARRATIVE: CASE EVENT DATE: 20160829
